FAERS Safety Report 20379985 (Version 1)
Quarter: 2022Q1

REPORT INFORMATION
  Report Type: Spontaneous
  Country: JP (occurrence: JP)
  Receive Date: 20220126
  Receipt Date: 20220126
  Transmission Date: 20220423
  Serious: Yes (Other)
  Sender: FDA-Public Use
  Company Number: JP-ALLERGAN-2202863US

PATIENT

DRUGS (1)
  1. ASENAPINE MALEATE [Suspect]
     Active Substance: ASENAPINE MALEATE
     Indication: Product used for unknown indication

REACTIONS (5)
  - Delirium [Unknown]
  - Bipolar disorder [Unknown]
  - Off label use [Unknown]
  - Borderline personality disorder [Unknown]
  - Neuropsychiatric symptoms [Unknown]
